FAERS Safety Report 6480050-4 (Version None)
Quarter: 2009Q4

REPORT INFORMATION
  Report Type: 
  Country: None (occurrence: None)
  Receive Date: 20091208
  Receipt Date: 20091203
  Transmission Date: 20100525
  Serious: Yes (Hospitalization)
  Sender: FDA-Public Use
  Company Number: JP-SANOFI-AVENTIS-2009SA005156

PATIENT
  Sex: Male
  Weight: 77 kg

DRUGS (19)
  1. ENOXAPARIN SODIUM [Suspect]
     Route: 058
     Dates: start: 20090717, end: 20090730
  2. CEFAZOLIN SODIUM [Suspect]
     Route: 042
     Dates: start: 20090716, end: 20090718
  3. DROLEPTAN [Concomitant]
     Dates: end: 20090718
  4. LEPETAN [Concomitant]
     Route: 042
     Dates: end: 20090718
  5. ROPION [Concomitant]
     Route: 042
     Dates: start: 20090716, end: 20090716
  6. NORVASC [Concomitant]
     Route: 048
  7. SERENAL [Concomitant]
     Route: 048
  8. PAXIL [Concomitant]
     Route: 048
  9. SULPIRIDE [Concomitant]
     Route: 048
  10. BENZALIN [Concomitant]
     Route: 048
  11. VOLTAREN [Concomitant]
     Route: 054
     Dates: start: 20090716, end: 20090720
  12. PURSENNID /SCH/ [Concomitant]
     Route: 048
  13. MYSLEE [Concomitant]
     Route: 048
     Dates: end: 20090726
  14. EURAX A [Concomitant]
     Route: 061
     Dates: start: 20090722
  15. TALION [Concomitant]
     Route: 048
     Dates: end: 20090731
  16. KENEI ENEMA [Concomitant]
     Route: 054
     Dates: end: 20090719
  17. ADOFEED [Concomitant]
     Route: 061
     Dates: start: 20090725
  18. MAGLAX [Concomitant]
     Route: 048
     Dates: start: 20090724
  19. DIAZEPAM [Concomitant]
     Route: 048
     Dates: end: 20090722

REACTIONS (2)
  - ALANINE AMINOTRANSFERASE INCREASED [None]
  - ASPARTATE AMINOTRANSFERASE INCREASED [None]
